FAERS Safety Report 9461515 (Version 1)
Quarter: 2013Q3

REPORT INFORMATION
  Report Type: Spontaneous
  Country: NZ (occurrence: NZ)
  Receive Date: 20130816
  Receipt Date: 20130816
  Transmission Date: 20140515
  Serious: Yes (Other)
  Sender: FDA-Public Use
  Company Number: PHHY2013NZ088152

PATIENT
  Age: 72 Year
  Sex: Female

DRUGS (5)
  1. ZOLEDRONIC ACID [Suspect]
     Dosage: UNK UKN, UNK
  2. FELODIPINE [Concomitant]
     Dosage: UNK UKN, UNK
     Route: 048
  3. GABAPENTIN [Concomitant]
     Dosage: UNK UKN, UNK
     Route: 048
  4. OMEPRAZOLE [Concomitant]
     Dosage: UNK UKN, UNK
     Route: 048
  5. TERBINAFINE [Concomitant]
     Dosage: UNK UKN, UNK
     Route: 048

REACTIONS (2)
  - Hyperthyroidism [Unknown]
  - Alopecia [Unknown]
